FAERS Safety Report 7064238-X (Version None)
Quarter: 2010Q4

REPORT INFORMATION
  Report Type: 
  Country: None (occurrence: None)
  Receive Date: 20101027
  Receipt Date: 20101013
  Transmission Date: 20110411
  Serious: Yes (Other)
  Sender: FDA-Public Use
  Company Number: DE-RANBAXY-2010RR-33851

PATIENT
  Age: 72 Year
  Sex: Male
  Weight: 71 kg

DRUGS (1)
  1. NITROFURANTOIN [Suspect]
     Dosage: 100 MG, UNK
     Route: 048

REACTIONS (6)
  - ALVEOLITIS [None]
  - BLOOD PRESSURE INCREASED [None]
  - INTERSTITIAL LUNG DISEASE [None]
  - MUCOSAL ATROPHY [None]
  - NIGHT SWEATS [None]
  - WEIGHT DECREASED [None]
